FAERS Safety Report 5502113-X (Version None)
Quarter: 2007Q4

REPORT INFORMATION
  Report Type: 
  Country: None (occurrence: None)
  Receive Date: 20071030
  Receipt Date: 20071022
  Transmission Date: 20080405
  Serious: Yes (Death)
  Sender: FDA-Public Use
  Company Number: US-JNJFOC-20071006102

PATIENT
  Age: 23 Month
  Sex: Male
  Weight: 13.61 kg

DRUGS (4)
  1. TYLENOL (CAPLET) [Suspect]
     Route: 048
  2. TYLENOL (CAPLET) [Suspect]
     Indication: NASOPHARYNGITIS
     Dosage: 2-3 DROPS ONCE A DAY
     Route: 048
  3. ROBITUSSIN DM [Suspect]
     Indication: NASOPHARYNGITIS
     Dosage: UNKNOWN
     Route: 048
  4. UNSPECIFIED COUGH AND COLD [Suspect]
     Indication: NASOPHARYNGITIS
     Route: 048

REACTIONS (1)
  - CARDIAC ARREST [None]
